FAERS Safety Report 9706744 (Version 1)
Quarter: 2013Q4

REPORT INFORMATION
  Report Type: Spontaneous
  Country: US (occurrence: US)
  Receive Date: 20131125
  Receipt Date: 20131125
  Transmission Date: 20140711
  Serious: No
  Sender: FDA-Public Use
  Company Number: US-009507513-1311USA007977

PATIENT
  Sex: 0

DRUGS (1)
  1. PROVENTIL [Suspect]
     Dosage: 2 PUFFS EVERY 4 HOURS AS NEEDED
     Route: 055
     Dates: start: 201310

REACTIONS (2)
  - Product quality issue [Unknown]
  - Underdose [Unknown]
